FAERS Safety Report 17157919 (Version 1)
Quarter: 2019Q4

REPORT INFORMATION
  Report Type: Report from Study
  Country: CO (occurrence: CO)
  Receive Date: 20191216
  Receipt Date: 20191216
  Transmission Date: 20200122
  Serious: Yes (Hospitalization, Other)
  Sender: FDA-Public Use
  Company Number: CO-ASTELLAS-2019US028069

PATIENT
  Age: 36 Year
  Sex: Male

DRUGS (8)
  1. TACROLIMUS. [Suspect]
     Active Substance: TACROLIMUS
     Indication: RENAL TRANSPLANT
     Dosage: 7 MG, ONCE DAILY(1 CAPSULE OF 5MG AND 2 CAPSULES OF 1MG)
     Route: 048
     Dates: start: 20190515, end: 20190531
  2. TACROLIMUS. [Suspect]
     Active Substance: TACROLIMUS
     Dosage: 8 MG, ONCE DAILY (1 CAPSULE OF 5MG AND 3 CAPSULES OF 1MG)
     Route: 048
     Dates: start: 20190601, end: 20190608
  3. AMPHOTERICIN B, LIPOSOME [Suspect]
     Active Substance: AMPHOTERICIN B
     Indication: HISTOPLASMOSIS
     Dosage: UNK UNK, UNKNOWN FREQ.
     Route: 042
     Dates: start: 201910
  4. TACROLIMUS. [Suspect]
     Active Substance: TACROLIMUS
     Dosage: 8 MG, ONCE DAILY (1 CAPSULE OF 5MG AND 3 CAPSULES OF 1 MG)
     Route: 048
     Dates: start: 20190621, end: 201911
  5. TACROLIMUS. [Suspect]
     Active Substance: TACROLIMUS
     Dosage: 8 MG, ONCE DAILY (1 CAPSULE OF 5 MG AND 1 CAPSULE OF 3 MG)
     Route: 048
  6. MYCOPHENOLATE [Concomitant]
     Active Substance: MYCOPHENOLIC ACID
     Indication: PRODUCT USED FOR UNKNOWN INDICATION
     Dosage: 720 MG, TWICE DAILY (2 CAPSULES OF 360 MG AT 6AM AND 2 CAPSULES OF 360MG AT 10PM)
     Route: 048
     Dates: start: 20190515
  7. TACROLIMUS. [Suspect]
     Active Substance: TACROLIMUS
     Dosage: 10 MG, (2 CAPSULES OF 5MG) ONCE DAILY
     Route: 048
     Dates: start: 201911
  8. TACROLIMUS. [Suspect]
     Active Substance: TACROLIMUS
     Dosage: 10 MG, ONCE DAILY (2 CAPSULES OF 5MG)
     Route: 048
     Dates: start: 20190609, end: 20190620

REACTIONS (7)
  - Chills [Recovering/Resolving]
  - Renal impairment [Recovered/Resolved]
  - Kidney transplant rejection [Recovered/Resolved]
  - Inflammation [Recovering/Resolving]
  - Spinal pain [Recovering/Resolving]
  - Pyrexia [Recovering/Resolving]
  - Histoplasmosis [Recovering/Resolving]

NARRATIVE: CASE EVENT DATE: 2019
